FAERS Safety Report 18918472 (Version 1)
Quarter: 2021Q1

REPORT INFORMATION
  Report Type: Spontaneous
  Country: AE (occurrence: AE)
  Receive Date: 20210219
  Receipt Date: 20210219
  Transmission Date: 20210420
  Serious: Yes (Other)
  Sender: FDA-Public Use
  Company Number: AE-BAUSCH-BL-2021-005056

PATIENT
  Age: 32 Year
  Sex: Male

DRUGS (1)
  1. LOTEMAX [Suspect]
     Active Substance: LOTEPREDNOL ETABONATE
     Indication: PHOTOREFRACTIVE KERATECTOMY
     Route: 047

REACTIONS (2)
  - Ocular hypertension [Recovered/Resolved]
  - Incorrect product administration duration [Unknown]
